FAERS Safety Report 6511326-X (Version None)
Quarter: 2009Q4

REPORT INFORMATION
  Report Type: 
  Country: None (occurrence: None)
  Receive Date: 20091222
  Receipt Date: 20090330
  Transmission Date: 20100525
  Serious: No
  Sender: FDA-Public Use
  Company Number: US-ASTRAZENECA-2009UW07992

PATIENT
  Age: 69 Year
  Sex: Female
  Weight: 74.8 kg

DRUGS (4)
  1. CRESTOR [Suspect]
     Indication: BLOOD CHOLESTEROL INCREASED
     Route: 048
     Dates: start: 20090309, end: 20090328
  2. INDERAL LA [Concomitant]
     Indication: TACHYCARDIA
  3. HYDROCHLOROTHIAZIDE [Concomitant]
  4. PEPCID AC [Concomitant]

REACTIONS (5)
  - BODY TEMPERATURE INCREASED [None]
  - PAIN IN EXTREMITY [None]
  - PARAESTHESIA [None]
  - PRURITUS [None]
  - TINNITUS [None]
